FAERS Safety Report 6702693-2 (Version None)
Quarter: 2010Q2

REPORT INFORMATION
  Report Type: 
  Country: None (occurrence: None)
  Receive Date: 20100429
  Receipt Date: 20100421
  Transmission Date: 20101027
  Serious: Yes (Hospitalization)
  Sender: FDA-Public Use
  Company Number: ES-AMGEN-QUU407706

PATIENT
  Sex: Male

DRUGS (1)
  1. CINACALCET HYDROCHLORIDE [Suspect]
     Indication: DRUG USE FOR UNKNOWN INDICATION

REACTIONS (4)
  - BLOOD PARATHYROID HORMONE INCREASED [None]
  - CONFUSIONAL STATE [None]
  - HYPERCALCAEMIA [None]
  - RENAL FAILURE [None]
